FAERS Safety Report 9529172 (Version 1)
Quarter: 2013Q3

REPORT INFORMATION
  Report Type: Spontaneous
  Country: FR (occurrence: FR)
  Receive Date: 20130917
  Receipt Date: 20130917
  Transmission Date: 20140515
  Serious: Yes (Other)
  Sender: FDA-Public Use
  Company Number: FR-ASTRAZENECA-2013SE69214

PATIENT
  Sex: Female

DRUGS (7)
  1. TENORMINE [Suspect]
     Route: 048
  2. TENORMINE [Suspect]
     Dosage: GENERIC; IT WAS DELIVERED BUT WAS NOT TAKEN BY PATIENT
  3. CORDARONE [Suspect]
     Route: 048
  4. CORDARONE [Suspect]
     Dosage: GENERIC; IT WAS DELIVERED BUT WAS NOT TAKEN BY PATIENT
  5. KARDEGIC [Concomitant]
  6. ZOCOR [Concomitant]
  7. ALDACTAZINE [Concomitant]

REACTIONS (2)
  - Malaise [Unknown]
  - Drug dose omission [Recovered/Resolved]
